FAERS Safety Report 13734891 (Version 1)
Quarter: 2017Q3

REPORT INFORMATION
  Report Type: Spontaneous
  Country: GB (occurrence: GB)
  Receive Date: 20170710
  Receipt Date: 20170710
  Transmission Date: 20171127
  Serious: Yes (Hospitalization)
  Sender: FDA-Public Use
  Company Number: GB-ACCORD-053266

PATIENT
  Age: 56 Year
  Sex: Female

DRUGS (15)
  1. ACETYLSALICYLIC ACID [Concomitant]
     Active Substance: ASPIRIN
  2. FUROSEMIDE. [Concomitant]
     Active Substance: FUROSEMIDE
     Dosage: MORNING
  3. NAFTIDROFURYL [Concomitant]
     Active Substance: NAFRONYL
     Dosage: AND ONCE NIGHT IF NEEDED.
  4. TAPENTADOL [Concomitant]
     Active Substance: TAPENTADOL
     Dosage: MORNING.
  5. DILTIAZEM. [Concomitant]
     Active Substance: DILTIAZEM
  6. VICTOZA [Concomitant]
     Active Substance: LIRAGLUTIDE
     Dosage: MORNING.
  7. TRESIBA [Concomitant]
     Active Substance: INSULIN DEGLUDEC
     Dosage: MORNING.
  8. NOVORAPID [Concomitant]
     Active Substance: INSULIN ASPART
     Dosage: 10 IN MORNING, 25 AT LUNCH AND 25 AT DINNER
  9. OMEPRAZOLE. [Concomitant]
     Active Substance: OMEPRAZOLE
     Dosage: MORNING
  10. RAMIPRIL. [Suspect]
     Active Substance: RAMIPRIL
     Indication: PRODUCT USED FOR UNKNOWN INDICATION
     Route: 048
  11. LEVOTHYROXINE. [Concomitant]
     Active Substance: LEVOTHYROXINE
     Dosage: MORNING
  12. CLENIL MODULITE [Concomitant]
     Active Substance: BECLOMETHASONE DIPROPIONATE
     Dosage: 1-2 PUFFS 2 TIMES A DAY.
     Route: 055
  13. BETAHISTINE [Concomitant]
     Active Substance: BETAHISTINE
  14. SALBUTAMOL [Concomitant]
     Active Substance: ALBUTEROL
     Dosage: 1-2 PUFFS 4 TIMES DAILY.
     Route: 055
  15. DULOXETINE. [Concomitant]
     Active Substance: DULOXETINE
     Dosage: 60MG IN MORNING, 30MG IN EVENING

REACTIONS (4)
  - Rash [Unknown]
  - Arrhythmia [Recovered/Resolved]
  - Hyperkalaemia [Recovered/Resolved]
  - Pruritus [Unknown]

NARRATIVE: CASE EVENT DATE: 20170319
